FAERS Safety Report 7226419-1 (Version None)
Quarter: 2011Q1

REPORT INFORMATION
  Report Type: 
  Country: None (occurrence: None)
  Receive Date: 20110105
  Receipt Date: 20101220
  Transmission Date: 20110831
  Serious: Yes (Disabling)
  Sender: FDA-Public Use
  Company Number: 10-582

PATIENT
  Age: 52 Year
  Sex: Male

DRUGS (6)
  1. CALCIUM ACETATE [Concomitant]
  2. ALBUTEROL INHALER [Concomitant]
  3. IBUPROFEN, UNKNOWN STRENGTH/MANUFACTURER [Suspect]
     Indication: PRODUCT USED FOR UNKNOWN INDICATION
     Dates: start: 20101101
  4. OXYCODONE HCL [Concomitant]
  5. ACETAMINOPHEN [Concomitant]
  6. EPOGEN [Concomitant]

REACTIONS (6)
  - QUADRIPLEGIA [None]
  - HAEMODIALYSIS [None]
  - HYPERKALAEMIA [None]
  - MUSCULOSKELETAL PAIN [None]
  - CHEST PAIN [None]
  - DYSPNOEA [None]
